FAERS Safety Report 4974009-3 (Version None)
Quarter: 2006Q2

REPORT INFORMATION
  Report Type: 
  Country: None (occurrence: None)
  Receive Date: 20060410
  Receipt Date: 20060328
  Transmission Date: 20061013
  Serious: Yes (Hospitalization, Disabling)
  Sender: FDA-Public Use
  Company Number: HQWYE772406DEC04

PATIENT
  Age: 44 Year
  Sex: Female
  Weight: 79.45 kg

DRUGS (33)
  1. EFFEXOR XR [Suspect]
     Indication: ANXIETY
     Dosage: SEE IMAGE
     Route: 048
     Dates: end: 20030501
  2. EFFEXOR XR [Suspect]
     Indication: DEPRESSION
     Dosage: SEE IMAGE
     Route: 048
     Dates: end: 20030501
  3. EFFEXOR XR [Suspect]
     Indication: ANXIETY
     Dosage: SEE IMAGE
     Route: 048
     Dates: start: 20030501, end: 20030601
  4. EFFEXOR XR [Suspect]
     Indication: DEPRESSION
     Dosage: SEE IMAGE
     Route: 048
     Dates: start: 20030501, end: 20030601
  5. EFFEXOR XR [Suspect]
     Indication: ANXIETY
     Dosage: SEE IMAGE
     Route: 048
     Dates: start: 20030601, end: 20031001
  6. EFFEXOR XR [Suspect]
     Indication: DEPRESSION
     Dosage: SEE IMAGE
     Route: 048
     Dates: start: 20030601, end: 20031001
  7. EFFEXOR XR [Suspect]
     Indication: ANXIETY
     Dosage: SEE IMAGE
     Route: 048
     Dates: start: 20031001, end: 20040601
  8. EFFEXOR XR [Suspect]
     Indication: DEPRESSION
     Dosage: SEE IMAGE
     Route: 048
     Dates: start: 20031001, end: 20040601
  9. EFFEXOR XR [Suspect]
     Indication: ANXIETY
     Dosage: SEE IMAGE
     Route: 048
     Dates: start: 20040601, end: 20040701
  10. EFFEXOR XR [Suspect]
     Indication: DEPRESSION
     Dosage: SEE IMAGE
     Route: 048
     Dates: start: 20040601, end: 20040701
  11. EFFEXOR XR [Suspect]
     Indication: ANXIETY
     Dosage: SEE IMAGE
     Route: 048
     Dates: start: 20040701, end: 20040901
  12. EFFEXOR XR [Suspect]
     Indication: DEPRESSION
     Dosage: SEE IMAGE
     Route: 048
     Dates: start: 20040701, end: 20040901
  13. EFFEXOR XR [Suspect]
     Indication: ANXIETY
     Dosage: SEE IMAGE
     Route: 048
     Dates: start: 20040901, end: 20040901
  14. EFFEXOR XR [Suspect]
     Indication: DEPRESSION
     Dosage: SEE IMAGE
     Route: 048
     Dates: start: 20040901, end: 20040901
  15. EFFEXOR XR [Suspect]
     Indication: ANXIETY
     Dosage: SEE IMAGE
     Route: 048
     Dates: start: 20040901, end: 20041101
  16. EFFEXOR XR [Suspect]
     Indication: DEPRESSION
     Dosage: SEE IMAGE
     Route: 048
     Dates: start: 20040901, end: 20041101
  17. EFFEXOR XR [Suspect]
     Indication: ANXIETY
     Dosage: SEE IMAGE
     Route: 048
     Dates: start: 20041101, end: 20050101
  18. EFFEXOR XR [Suspect]
     Indication: DEPRESSION
     Dosage: SEE IMAGE
     Route: 048
     Dates: start: 20041101, end: 20050101
  19. EFFEXOR XR [Suspect]
     Indication: ANXIETY
     Dosage: SEE IMAGE
     Route: 048
     Dates: start: 20050101, end: 20050201
  20. EFFEXOR XR [Suspect]
     Indication: DEPRESSION
     Dosage: SEE IMAGE
     Route: 048
     Dates: start: 20050101, end: 20050201
  21. EFFEXOR XR [Suspect]
     Indication: ANXIETY
     Dosage: SEE IMAGE
     Route: 048
     Dates: start: 19981101
  22. EFFEXOR XR [Suspect]
     Indication: DEPRESSION
     Dosage: SEE IMAGE
     Route: 048
     Dates: start: 19981101
  23. ALCOHOL (ETHANOL) [Suspect]
     Dosage: OVERDOSE AMOUNT,ORAL
     Route: 048
     Dates: start: 20051016, end: 20051016
  24. DOXEPIN HCL [Suspect]
  25. DURAGESIC-100 [Suspect]
     Dosage: OVERDOSE AMOUNT UNKNOWN ORAL
     Route: 048
     Dates: start: 20051016, end: 20051016
  26. KLONOPIN [Suspect]
     Dosage: OVERDOSE AMOUNT ^40-50-60^ 1 MG TABLETS
     Dates: start: 20051016, end: 20051016
  27. LITHIUM (LITHIUM) [Suspect]
  28. PROVIGIL [Concomitant]
  29. LAMICTAL [Concomitant]
  30. ALPRAZOLAM [Concomitant]
  31. LEXAPRO [Concomitant]
  32. ATIVAN [Concomitant]
  33. PROZAC [Concomitant]

REACTIONS (56)
  - ABNORMAL DREAMS [None]
  - AFFECT LABILITY [None]
  - AFFECTIVE DISORDER [None]
  - ANGER [None]
  - ANHEDONIA [None]
  - COGNITIVE DISORDER [None]
  - COMPULSIONS [None]
  - CONVULSION [None]
  - COORDINATION ABNORMAL [None]
  - CRYING [None]
  - DEPRESSED LEVEL OF CONSCIOUSNESS [None]
  - DISORIENTATION [None]
  - DISTURBANCE IN ATTENTION [None]
  - DIZZINESS [None]
  - DRUG INEFFECTIVE [None]
  - DRUG WITHDRAWAL SYNDROME [None]
  - DYSKINESIA [None]
  - ELECTRIC SHOCK [None]
  - ENCEPHALOPATHY [None]
  - EPILEPSY [None]
  - FLUSHING [None]
  - FORMICATION [None]
  - HALLUCINATION, VISUAL [None]
  - HEMIPARESIS [None]
  - HOMICIDAL IDEATION [None]
  - HYPERSOMNIA [None]
  - HYPERTENSION [None]
  - ILLUSION [None]
  - IMPAIRED DRIVING ABILITY [None]
  - IMPAIRED WORK ABILITY [None]
  - INFLUENZA LIKE ILLNESS [None]
  - IRRITABILITY [None]
  - MALAISE [None]
  - MALNUTRITION [None]
  - MEMORY IMPAIRMENT [None]
  - MIGRAINE [None]
  - MULTIPLE DRUG OVERDOSE INTENTIONAL [None]
  - OBSESSIVE THOUGHTS [None]
  - OCCUPATIONAL PHYSICAL PROBLEM [None]
  - OVERDOSE [None]
  - PAIN [None]
  - PARAESTHESIA [None]
  - PERSONALITY CHANGE [None]
  - PHOTOPSIA [None]
  - PSYCHOTIC DISORDER [None]
  - PYREXIA [None]
  - SOCIAL PROBLEM [None]
  - SUICIDAL IDEATION [None]
  - SUICIDE ATTEMPT [None]
  - THERAPEUTIC AGENT TOXICITY [None]
  - THERAPY NON-RESPONDER [None]
  - TREMOR [None]
  - UNEVALUABLE EVENT [None]
  - VERTIGO [None]
  - WEIGHT DECREASED [None]
  - WEIGHT INCREASED [None]
